FAERS Safety Report 8298785-X (Version None)
Quarter: 2012Q2

REPORT INFORMATION
  Report Type: 
  Country: None (occurrence: None)
  Receive Date: 20120419
  Receipt Date: 20120413
  Transmission Date: 20120825
  Serious: Yes (Hospitalization)
  Sender: FDA-Public Use
  Company Number: BE-JNJFOC-20111008434

PATIENT
  Sex: Female
  Weight: 56.4 kg

DRUGS (4)
  1. LIDOCAINE [Concomitant]
     Route: 061
  2. ESTRADIOL [Concomitant]
     Route: 065
     Dates: start: 20090101
  3. TAPENTADOL HYDROCHLORIDE [Suspect]
     Indication: BACK PAIN
     Route: 048
     Dates: start: 20110915, end: 20111008
  4. FENTANYL-100 [Concomitant]
     Route: 065

REACTIONS (6)
  - HAND FRACTURE [None]
  - TRAUMATIC LUNG INJURY [None]
  - ROAD TRAFFIC ACCIDENT [None]
  - PNEUMOTHORAX [None]
  - INJURY [None]
  - PLEURAL EFFUSION [None]
